FAERS Safety Report 13777933 (Version 1)
Quarter: 2017Q3

REPORT INFORMATION
  Report Type: Spontaneous
  Country: SE (occurrence: SE)
  Receive Date: 20170721
  Receipt Date: 20170721
  Transmission Date: 20171127
  Serious: Yes (Other)
  Sender: FDA-Public Use
  Company Number: SE-009507513-1707SWE002665

PATIENT
  Age: 68 Year
  Sex: Female

DRUGS (5)
  1. ETALPHA [Concomitant]
     Active Substance: ALFACALCIDOL
     Dosage: UNK
  2. PREDNISOLONE. [Concomitant]
     Active Substance: PREDNISOLONE
     Dosage: UNK
     Route: 048
  3. LEVAXIN [Concomitant]
     Active Substance: LEVOTHYROXINE SODIUM
     Dosage: UNK
  4. CALCIUM (UNSPECIFIED) [Concomitant]
     Active Substance: CALCIUM
     Dosage: UNK
     Route: 048
  5. TEMODAL [Suspect]
     Active Substance: TEMOZOLOMIDE
     Indication: METASTASES TO LIVER
     Dosage: 1 CAPSULE PER DAY FOR 5 DAYS, 5 DAYS PER MONTH
     Route: 048
     Dates: start: 20170425

REACTIONS (4)
  - Peroneal nerve palsy [Not Recovered/Not Resolved]
  - Nausea [Unknown]
  - Drug effective for unapproved indication [Unknown]
  - Product use in unapproved indication [Unknown]

NARRATIVE: CASE EVENT DATE: 2017
